FAERS Safety Report 10946858 (Version 2)
Quarter: 2015Q2

REPORT INFORMATION
  Report Type: Spontaneous
  Country: JP (occurrence: JP)
  Receive Date: 20150323
  Receipt Date: 20150527
  Transmission Date: 20150821
  Serious: Yes (Life-Threatening)
  Sender: FDA-Public Use
  Company Number: JP-ASTRAZENECA-2015SE24967

PATIENT
  Age: 81 Year
  Sex: Female
  Weight: 40 kg

DRUGS (5)
  1. PERAPRIN [Concomitant]
     Active Substance: METOCLOPRAMIDE
     Route: 048
     Dates: start: 20150217, end: 20150223
  2. NEXIUM [Suspect]
     Active Substance: ESOMEPRAZOLE MAGNESIUM
     Route: 048
     Dates: start: 20150221, end: 20150227
  3. TRAMCET [Concomitant]
     Active Substance: ACETAMINOPHEN\TRAMADOL
     Route: 048
     Dates: start: 20150218, end: 20150227
  4. LIXIANA [Suspect]
     Active Substance: EDOXABAN TOSILATE MONOHYDRATE
     Indication: THROMBOSIS
     Route: 048
     Dates: start: 20150217, end: 20150226
  5. CELECOX [Concomitant]
     Active Substance: CELECOXIB
     Route: 048
     Dates: end: 20150227

REACTIONS (2)
  - Lung disorder [Recovering/Resolving]
  - Haemophilus infection [Unknown]

NARRATIVE: CASE EVENT DATE: 20150226
